FAERS Safety Report 25884972 (Version 1)
Quarter: 2025Q4

REPORT INFORMATION
  Report Type: Spontaneous
  Country: US (occurrence: None)
  Receive Date: 20251005
  Receipt Date: 20251005
  Transmission Date: 20260117
  Serious: Yes (Hospitalization, Other)
  Sender: FDA-CTU
  Company Number: None

PATIENT
  Age: 74 Year
  Sex: Female
  Weight: 67.5 kg

DRUGS (10)
  1. BENZOCAINE (BENZOCAINE) [Suspect]
     Active Substance: BENZOCAINE
     Indication: Tooth extraction
     Dates: start: 20250801, end: 20250813
  2. Bero Ellipta [Concomitant]
  3. ALBUTEROL [Concomitant]
     Active Substance: ALBUTEROL
  4. ALENDRONATE [Concomitant]
     Active Substance: ALENDRONATE SODIUM
  5. ROPINIROLE [Concomitant]
     Active Substance: ROPINIROLE
  6. ZOLPIDEM TARTRATE [Concomitant]
     Active Substance: ZOLPIDEM TARTRATE
  7. ATORVASTATIN [Concomitant]
     Active Substance: ATORVASTATIN
  8. C pap [Concomitant]
  9. DEVICE [Concomitant]
     Active Substance: DEVICE
  10. VITAMIN D3 [Concomitant]
     Active Substance: CHOLECALCIFEROL

REACTIONS (3)
  - Contraindicated product administered [None]
  - Drug hypersensitivity [None]
  - Documented hypersensitivity to administered product [None]

NARRATIVE: CASE EVENT DATE: 20250813
